FAERS Safety Report 13539498 (Version 1)
Quarter: 2017Q2

REPORT INFORMATION
  Report Type: Spontaneous
  Country: JP (occurrence: JP)
  Receive Date: 20170512
  Receipt Date: 20170512
  Transmission Date: 20170830
  Serious: Yes (Hospitalization, Other)
  Sender: FDA-Public Use
  Company Number: JP-ROCHE-1926006

PATIENT
  Age: 74 Year
  Sex: Female
  Weight: 37 kg

DRUGS (5)
  1. NASEA [Suspect]
     Active Substance: RAMOSETRON HYDROCHLORIDE
     Indication: NAUSEA
  2. TAMIFLU [Suspect]
     Active Substance: OSELTAMIVIR PHOSPHATE
     Indication: ANTIVIRAL PROPHYLAXIS
     Dosage: MOST RECENT DOSE: 19/JAN/2017
     Route: 048
     Dates: start: 20170118
  3. NASEA [Suspect]
     Active Substance: RAMOSETRON HYDROCHLORIDE
     Indication: DECREASED APPETITE
     Dosage: MOST RECENT DOSE: 15/JAN/2017
     Route: 048
     Dates: start: 20170110
  4. XALKORI [Suspect]
     Active Substance: CRIZOTINIB
     Indication: NON-SMALL CELL LUNG CANCER METASTATIC
     Route: 048
     Dates: start: 20170111, end: 20170117
  5. ONETRAM [Suspect]
     Active Substance: TRAMADOL HYDROCHLORIDE
     Indication: PAIN
     Dosage: MOST RECENT DOSE: 19/JAN/2017
     Route: 048
     Dates: start: 20170114

REACTIONS (7)
  - Pleural effusion [Recovered/Resolved]
  - Renal impairment [Recovering/Resolving]
  - Hyponatraemia [Recovered/Resolved]
  - Pulmonary hypertension [Recovering/Resolving]
  - Hypoxia [Recovering/Resolving]
  - Delirium [Recovered/Resolved]
  - Inappropriate antidiuretic hormone secretion [Recovered/Resolved]

NARRATIVE: CASE EVENT DATE: 20170110
